FAERS Safety Report 16947496 (Version 1)
Quarter: 2019Q4

REPORT INFORMATION
  Report Type: Spontaneous
  Country: IT (occurrence: IT)
  Receive Date: 20191022
  Receipt Date: 20191022
  Transmission Date: 20200122
  Serious: Yes (Hospitalization, Other)
  Sender: FDA-Public Use
  Company Number: IT-AMGEN-ITASP2019171273

PATIENT
  Age: 80 Year
  Sex: Male

DRUGS (4)
  1. TRASTUZUMAB. [Suspect]
     Active Substance: TRASTUZUMAB
     Indication: ADENOCARCINOMA GASTRIC
     Dosage: 408 MILLIGRAM, CYCLICAL
     Route: 042
     Dates: start: 20190828, end: 20190828
  2. NADROPARIN CALCIUM [Concomitant]
     Active Substance: NADROPARIN CALCIUM
     Dosage: UNK
     Route: 058
  3. CAPECITABINE. [Suspect]
     Active Substance: CAPECITABINE
     Indication: ADENOCARCINOMA GASTRIC
     Dosage: 1800 MILLIGRAM, CYCLICAL
     Route: 048
  4. OXALIPLATINO SUN [Suspect]
     Active Substance: OXALIPLATIN
     Indication: ADENOCARCINOMA GASTRIC
     Dosage: 226 MILLIGRAM, CYCLICAL
     Route: 042
     Dates: start: 20190828, end: 20190828

REACTIONS (3)
  - Diarrhoea [Recovering/Resolving]
  - Asthenia [Recovering/Resolving]
  - Q fever [Recovering/Resolving]

NARRATIVE: CASE EVENT DATE: 20190914
